FAERS Safety Report 4289251-7 (Version None)
Quarter: 2004Q1

REPORT INFORMATION
  Report Type: 
  Country: None (occurrence: None)
  Receive Date: 20040203
  Receipt Date: 20000328
  Transmission Date: 20041129
  Serious: Yes (Hospitalization)
  Sender: FDA-Public Use
  Company Number: 2000-046

PATIENT
  Age: 56 Year
  Sex: Male

DRUGS (1)
  1. DORYX [Suspect]
     Dosage: 100 MG QD ORAL
     Route: 048
     Dates: start: 19971128, end: 19971130

REACTIONS (4)
  - DERMATITIS EXFOLIATIVE [None]
  - OEDEMA [None]
  - PAIN [None]
  - RASH [None]
